FAERS Safety Report 12415133 (Version 1)
Quarter: 2016Q2

REPORT INFORMATION
  Report Type: Spontaneous
  Country: US (occurrence: US)
  Receive Date: 20160530
  Receipt Date: 20160530
  Transmission Date: 20160815
  Serious: No
  Sender: FDA-Public Use
  Company Number: US-009507513-1605USA010447

PATIENT
  Sex: Female
  Weight: 81.6 kg

DRUGS (11)
  1. AMPYRA [Suspect]
     Active Substance: DALFAMPRIDINE
     Indication: GAIT DISTURBANCE
     Dosage: 10 MG, BID
     Route: 048
     Dates: start: 20130919, end: 20160503
  2. TECFIDERA [Suspect]
     Active Substance: DIMETHYL FUMARATE
     Indication: MULTIPLE SCLEROSIS
     Dosage: UNK
     Route: 048
     Dates: start: 201309
  3. RELIVER [Concomitant]
     Dosage: UNK
  4. AMPYRA [Suspect]
     Active Substance: DALFAMPRIDINE
     Dosage: 10 UNK, UNK
     Route: 048
     Dates: start: 20160504
  5. CYANOCOBALAMIN. [Concomitant]
     Active Substance: CYANOCOBALAMIN
     Dosage: UNK
     Route: 058
  6. TYLENOL [Concomitant]
     Active Substance: ACETAMINOPHEN
     Dosage: UNK
  7. ALPRAZOLAM. [Concomitant]
     Active Substance: ALPRAZOLAM
     Dosage: UNK
     Dates: start: 20130905
  8. GRAPE SEED OIL [Concomitant]
  9. OREGANO. [Concomitant]
     Active Substance: OREGANO
     Dosage: UNK
  10. IVERMECTIN. [Suspect]
     Active Substance: IVERMECTIN
     Indication: INFECTION
     Dosage: UNK, UNKNOWN
  11. VITAMIN D [Concomitant]
     Active Substance: CHOLECALCIFEROL
     Dosage: UNK

REACTIONS (9)
  - Drug ineffective [Unknown]
  - Rash [Not Recovered/Not Resolved]
  - Adverse event [Unknown]
  - Balance disorder [Recovering/Resolving]
  - Hypersensitivity [Unknown]
  - Gait disturbance [Recovering/Resolving]
  - Scab [Not Recovered/Not Resolved]
  - Urticaria [Not Recovered/Not Resolved]
  - Drug dose omission [Unknown]

NARRATIVE: CASE EVENT DATE: 2016
